FAERS Safety Report 4507051-7 (Version None)
Quarter: 2004Q4

REPORT INFORMATION
  Report Type: 
  Country: None (occurrence: None)
  Receive Date: 20041117
  Receipt Date: 20041104
  Transmission Date: 20050328
  Serious: Yes (Hospitalization)
  Sender: FDA-Public Use
  Company Number: 2004-00756

PATIENT
  Age: 75 Year
  Sex: Male
  Weight: 65 kg

DRUGS (1)
  1. VELCADE [Suspect]
     Indication: MULTIPLE MYELOMA
     Dosage: 2.20 MG, INTRAVENOUS
     Route: 042
     Dates: start: 20040920

REACTIONS (5)
  - CONVULSION [None]
  - DEHYDRATION [None]
  - DIZZINESS [None]
  - LOSS OF CONSCIOUSNESS [None]
  - TOOTH INFECTION [None]
